FAERS Safety Report 14910229 (Version 4)
Quarter: 2018Q4

REPORT INFORMATION
  Report Type: Spontaneous
  Country: US (occurrence: US)
  Receive Date: 20180517
  Receipt Date: 20181207
  Transmission Date: 20190204
  Serious: No
  Sender: FDA-Public Use
  Company Number: US-ASTRAZENECA-2016SE94205

PATIENT
  Age: 21779 Day
  Sex: Female
  Weight: 77.1 kg

DRUGS (5)
  1. BYDUREON [Suspect]
     Active Substance: EXENATIDE
     Indication: DIABETES MELLITUS
     Dosage: PEN 1, 2 MG ONCE A WEEK
     Route: 058
     Dates: start: 201604
  2. CHOLESTEROL [Concomitant]
     Active Substance: CHOLESTEROL
  3. TELMISARTAN. [Concomitant]
     Active Substance: TELMISARTAN
     Indication: NEUROPATHY PERIPHERAL
     Route: 048
  4. BYDUREON [Suspect]
     Active Substance: EXENATIDE
     Indication: DIABETES MELLITUS
     Dosage: PEN 2, 2 MG ONCE A WEEK
     Route: 058
  5. BYDUREON BCISE [Suspect]
     Active Substance: EXENATIDE
     Indication: TYPE 2 DIABETES MELLITUS
     Route: 058
     Dates: start: 20180426

REACTIONS (8)
  - Injection site mass [Unknown]
  - Injection site pruritus [Unknown]
  - Underdose [Unknown]
  - Device defective [Unknown]
  - Product quality issue [Unknown]
  - Intentional device misuse [Unknown]
  - Injection site injury [Unknown]
  - Injection site pain [Unknown]

NARRATIVE: CASE EVENT DATE: 20160803
